FAERS Safety Report 20746208 (Version 5)
Quarter: 2023Q2

REPORT INFORMATION
  Report Type: Spontaneous
  Country: US (occurrence: US)
  Receive Date: 20220425
  Receipt Date: 20230511
  Transmission Date: 20230721
  Serious: Yes (Other)
  Sender: FDA-Public Use
  Company Number: US-PFIZER INC-202200568713

PATIENT
  Age: 60 Year
  Sex: Female

DRUGS (2)
  1. XELJANZ XR [Suspect]
     Active Substance: TOFACITINIB CITRATE
     Indication: Rheumatoid arthritis
     Dosage: 11 MG, 1X/DAY
     Route: 048
     Dates: start: 20220216, end: 202211
  2. XELJANZ XR [Suspect]
     Active Substance: TOFACITINIB CITRATE
     Indication: Psoriatic arthropathy
     Dosage: 11 MG, 1X/DAY
     Route: 048
     Dates: start: 20220216

REACTIONS (13)
  - Cellulitis [Unknown]
  - Product dose omission in error [Unknown]
  - Pain [Recovering/Resolving]
  - Condition aggravated [Unknown]
  - Joint stiffness [Unknown]
  - Movement disorder [Unknown]
  - Nausea [Unknown]
  - Gait disturbance [Unknown]
  - Back pain [Unknown]
  - COVID-19 [Unknown]
  - Lymphoedema [Unknown]
  - Depression [Unknown]
  - Condition aggravated [Unknown]

NARRATIVE: CASE EVENT DATE: 20220101
